FAERS Safety Report 7676443-X (Version None)
Quarter: 2011Q3

REPORT INFORMATION
  Report Type: 
  Country: None (occurrence: None)
  Receive Date: 20110811
  Receipt Date: 20110808
  Transmission Date: 20111222
  Serious: Yes (Other)
  Sender: FDA-Public Use
  Company Number: US-CEPHALON-US021790

PATIENT
  Sex: Female
  Weight: 95 kg

DRUGS (10)
  1. PROVIGIL [Suspect]
     Route: 048
     Dates: start: 20070901
  2. CO-Q-10 [Concomitant]
     Indication: HYPERCHOLESTEROLAEMIA
     Route: 065
     Dates: start: 20070501
  3. IMODIUM MULTI-SYMPTOM RELIEF [Suspect]
     Route: 048
  4. RITALIN [Concomitant]
     Indication: POOR QUALITY SLEEP
     Dosage: ONCE WEEKLY PRN
     Route: 048
     Dates: start: 19870101
  5. GLUCOPHAGE [Suspect]
     Route: 048
     Dates: start: 20070901
  6. LANTUS [Concomitant]
     Indication: DIABETES MELLITUS
     Route: 058
     Dates: start: 20070501
  7. PRAVACHOL [Concomitant]
     Indication: HYPERCHOLESTEROLAEMIA
     Route: 048
     Dates: start: 20070501
  8. GLUCOPHAGE [Suspect]
     Indication: DIABETES MELLITUS
     Route: 048
     Dates: start: 20070501, end: 20070831
  9. PROVIGIL [Suspect]
     Indication: NARCOLEPSY
     Route: 048
     Dates: start: 20000101, end: 20070831
  10. AMBIEN CR [Concomitant]
     Indication: SLEEP DISORDER THERAPY
     Route: 048
     Dates: start: 20060101

REACTIONS (4)
  - ANAPHYLACTIC REACTION [None]
  - DRUG INTERACTION [None]
  - BLOOD GLUCOSE DECREASED [None]
  - RASH PRURITIC [None]
